FAERS Safety Report 7125165-2 (Version None)
Quarter: 2010Q4

REPORT INFORMATION
  Report Type: 
  Country: None (occurrence: None)
  Receive Date: 20101129
  Receipt Date: 20101115
  Transmission Date: 20110411
  Serious: Yes (Hospitalization)
  Sender: FDA-Public Use
  Company Number: CN-ASTRAZENECA-2010SE54606

PATIENT
  Age: 40 Year
  Sex: Female

DRUGS (3)
  1. BETALOC ZOK [Suspect]
     Indication: CARDIOMYOPATHY
     Route: 048
     Dates: start: 20090101, end: 20101116
  2. BETALOC ZOK [Suspect]
     Indication: CARDIAC HYPERTROPHY
     Route: 048
     Dates: start: 20090101, end: 20101116
  3. CANDESARTAN CILEXETIL [Concomitant]
     Route: 048
     Dates: start: 20100513

REACTIONS (8)
  - DEPRESSED LEVEL OF CONSCIOUSNESS [None]
  - DIZZINESS [None]
  - DRY MOUTH [None]
  - FACE OEDEMA [None]
  - FATIGUE [None]
  - NASOPHARYNGITIS [None]
  - OEDEMA PERIPHERAL [None]
  - VISION BLURRED [None]
